FAERS Safety Report 6270006-9 (Version None)
Quarter: 2009Q3

REPORT INFORMATION
  Report Type: 
  Country: None (occurrence: None)
  Receive Date: 20090716
  Receipt Date: 20090708
  Transmission Date: 20100115
  Serious: Yes (Disabling)
  Sender: FDA-Public Use
  Company Number: US-B.I. PHARMACEUTICALS,INC./RIDGEFIELD-2009-BP-06791BP

PATIENT
  Age: 46 Year
  Sex: Female

DRUGS (2)
  1. FLOMAX [Suspect]
     Indication: RESIDUAL URINE
     Dosage: 0.4 MG
     Dates: end: 20090422
  2. THYROID TAB [Concomitant]
     Dosage: 60 MG

REACTIONS (7)
  - DERMATITIS ALLERGIC [None]
  - DYSPHAGIA [None]
  - HYPERSENSITIVITY [None]
  - PRURITUS [None]
  - RASH [None]
  - THROAT IRRITATION [None]
  - URTICARIA [None]
